FAERS Safety Report 6384033-4 (Version None)
Quarter: 2009Q4

REPORT INFORMATION
  Report Type: 
  Country: None (occurrence: None)
  Receive Date: 20091001
  Receipt Date: 20090925
  Transmission Date: 20100525
  Serious: Yes (Hospitalization, Other)
  Sender: FDA-Public Use
  Company Number: FR-JNJFOC-20090907372

PATIENT
  Sex: Male

DRUGS (8)
  1. HALDOL [Suspect]
     Indication: PSYCHOTIC DISORDER
     Route: 048
  2. TEGRETOL [Suspect]
     Indication: PSYCHOTIC DISORDER
     Route: 048
  3. ALCOHOL [Suspect]
     Indication: DRUG USE FOR UNKNOWN INDICATION
     Route: 065
  4. LOGIMAX [Concomitant]
     Indication: HYPERTENSION
     Route: 065
  5. ARTANE [Concomitant]
     Route: 065
  6. TAHOR [Concomitant]
     Route: 065
  7. RIVOTRIL [Concomitant]
     Route: 065
  8. MICARDIS [Concomitant]
     Route: 065

REACTIONS (2)
  - HYPONATRAEMIA [None]
  - LOSS OF CONSCIOUSNESS [None]
